FAERS Safety Report 15372183 (Version 1)
Quarter: 2018Q3

REPORT INFORMATION
  Report Type: Report from Study
  Country: US (occurrence: US)
  Receive Date: 20180911
  Receipt Date: 20180911
  Transmission Date: 20181010
  Serious: Yes (Hospitalization)
  Sender: FDA-Public Use
  Company Number: US-ACTELION-A-US2018-174850

PATIENT
  Age: 52 Year
  Sex: Male

DRUGS (1)
  1. OPSUMIT [Suspect]
     Active Substance: MACITENTAN
     Indication: PORTOPULMONARY HYPERTENSION
     Dosage: UNK
     Route: 048
     Dates: start: 20180420

REACTIONS (10)
  - Diarrhoea [Recovered/Resolved]
  - Cardiac failure congestive [Recovered/Resolved]
  - Phimosis [Recovered/Resolved]
  - Varices oesophageal [Recovered/Resolved]
  - Gastrointestinal haemorrhage [Recovered/Resolved]
  - Muscle spasms [Not Recovered/Not Resolved]
  - Condition aggravated [Recovered/Resolved]
  - Aspartate aminotransferase increased [Recovered/Resolved]
  - Hepatic cirrhosis [Unknown]
  - Anaemia [Not Recovered/Not Resolved]

NARRATIVE: CASE EVENT DATE: 20180503
